FAERS Safety Report 19205603 (Version 1)
Quarter: 2021Q2

REPORT INFORMATION
  Report Type: Spontaneous
  Country: US (occurrence: US)
  Receive Date: 20210503
  Receipt Date: 20210503
  Transmission Date: 20210717
  Serious: No
  Sender: FDA-Public Use
  Company Number: US-FARMAPROD-202101-0064

PATIENT
  Sex: Female

DRUGS (8)
  1. POLYMYXIN B. [Concomitant]
     Active Substance: POLYMYXIN B
  2. TYLENOL [Concomitant]
     Active Substance: ACETAMINOPHEN
  3. VENLAFAXIN HCL [Concomitant]
  4. OXERVATE [Suspect]
     Active Substance: CENEGERMIN-BKBJ
     Indication: NEUROTROPHIC KERATOPATHY
     Route: 047
     Dates: start: 20201223
  5. ZIRGAN [Concomitant]
     Active Substance: GANCICLOVIR
  6. VALTREX [Concomitant]
     Active Substance: VALACYCLOVIR HYDROCHLORIDE
  7. GABAPENTIN. [Concomitant]
     Active Substance: GABAPENTIN
  8. PREDNISOLONE?NEPAFENAC [Concomitant]

REACTIONS (1)
  - Eyelid pain [Unknown]
